FAERS Safety Report 20375839 (Version 2)
Quarter: 2022Q1

REPORT INFORMATION
  Report Type: Spontaneous
  Country: US (occurrence: US)
  Receive Date: 20220125
  Receipt Date: 20220302
  Transmission Date: 20220424
  Serious: Yes (Other)
  Sender: FDA-Public Use
  Company Number: US-PFIZER INC-202200071688

PATIENT
  Age: 64 Year
  Sex: Female

DRUGS (3)
  1. XELJANZ XR [Suspect]
     Active Substance: TOFACITINIB CITRATE
     Dosage: 11 MG
     Dates: start: 20211130
  2. XELJANZ XR [Suspect]
     Active Substance: TOFACITINIB CITRATE
     Dosage: 11 MG
     Dates: start: 20211214
  3. XELJANZ XR [Suspect]
     Active Substance: TOFACITINIB CITRATE
     Dosage: 11 MG
     Dates: start: 20211222

REACTIONS (11)
  - Weight decreased [Unknown]
  - Arthralgia [Unknown]
  - Diarrhoea [Unknown]
  - Tooth abscess [Unknown]
  - Wound [Unknown]
  - Impaired healing [Unknown]
  - Precancerous condition [Unknown]
  - Decreased appetite [Unknown]
  - Abdominal discomfort [Unknown]
  - Haemorrhoids [Unknown]
  - Dry mouth [Unknown]

NARRATIVE: CASE EVENT DATE: 20211201
